FAERS Safety Report 22376622 (Version 4)
Quarter: 2023Q2

REPORT INFORMATION
  Report Type: Spontaneous
  Country: US (occurrence: US)
  Receive Date: 20230528
  Receipt Date: 20230531
  Transmission Date: 20230721
  Serious: No
  Sender: FDA-Public Use
  Company Number: US-Dermavant-000599

PATIENT
  Age: 87 Year
  Sex: Female

DRUGS (3)
  1. VTAMA [Suspect]
     Active Substance: TAPINAROF
     Indication: Psoriasis
     Dosage: AREA OF APPLICATION: BILATERAL LE
     Route: 061
     Dates: start: 20230301, end: 20230303
  2. ILUMYA [Concomitant]
     Active Substance: TILDRAKIZUMAB-ASMN
     Dates: start: 20230301, end: 20230403
  3. CLOBETASOL [Concomitant]
     Active Substance: CLOBETASOL
     Dates: start: 20230302

REACTIONS (1)
  - Rash [Recovered/Resolved]

NARRATIVE: CASE EVENT DATE: 20230301
